FAERS Safety Report 5195124-8 (Version None)
Quarter: 2006Q4

REPORT INFORMATION
  Report Type: 
  Country: None (occurrence: None)
  Receive Date: 20061229
  Receipt Date: 20051213
  Transmission Date: 20070319
  Serious: Yes (Hospitalization)
  Sender: FDA-Public Use
  Company Number: FR-PFIZER INC-2005170681

PATIENT
  Sex: Male
  Weight: 70 kg

DRUGS (6)
  1. SU-011,248 [Suspect]
     Indication: RENAL CELL CARCINOMA STAGE UNSPECIFIED
     Route: 048
  2. TRANEXAMIC ACID [Concomitant]
     Route: 048
  3. METHYLPREDNISOLONE 16MG TAB [Concomitant]
     Route: 048
  4. RABEPRAZOLE SODIUM [Concomitant]
     Route: 048
     Dates: start: 20050104
  5. DIOSMECTITE [Concomitant]
     Route: 048
     Dates: start: 20051112, end: 20051130
  6. TITANOREINE [Concomitant]
     Route: 061
     Dates: start: 20051112, end: 20060110

REACTIONS (1)
  - PLEURAL EFFUSION [None]
